FAERS Safety Report 9894339 (Version 3)
Quarter: 2014Q2

REPORT INFORMATION
  Report Type: Report from Study
  Country: JP (occurrence: JP)
  Receive Date: 20140213
  Receipt Date: 20140414
  Transmission Date: 20141212
  Serious: Yes (Life-Threatening, Hospitalization, Other)
  Sender: FDA-Public Use
  Company Number: JP-GILEAD-2013-0083493

PATIENT
  Age: 58 Year
  Sex: Male
  Weight: 62 kg

DRUGS (28)
  1. AMBRISENTAN [Suspect]
     Indication: PULMONARY ARTERIAL HYPERTENSION
     Dosage: 10 MG, QD
     Route: 048
     Dates: start: 20120202
  2. AMBRISENTAN [Suspect]
     Dosage: 2.5 MG, QD
     Route: 048
     Dates: start: 20120112, end: 20120118
  3. AMBRISENTAN [Suspect]
     Dosage: 5 MG, QD
     Route: 048
     Dates: start: 20120119, end: 20120125
  4. AMBRISENTAN [Suspect]
     Dosage: 7.5 MG, QD
     Route: 048
     Dates: start: 20120126, end: 20120201
  5. FLOLAN [Suspect]
     Indication: PULMONARY ARTERIAL HYPERTENSION
     Route: 042
     Dates: start: 20120315, end: 201206
  6. NEXAVAR [Suspect]
     Indication: PULMONARY ARTERIAL HYPERTENSION
     Dosage: UNK
     Route: 048
     Dates: start: 20120609, end: 20120628
  7. NEXAVAR [Suspect]
     Dosage: UNK
     Route: 048
     Dates: start: 20120705, end: 20120710
  8. GLIVEC [Suspect]
     Indication: PRODUCT USED FOR UNKNOWN INDICATION
     Route: 048
     Dates: start: 20120629, end: 20120705
  9. TAKEPRON [Suspect]
     Indication: GASTRITIS PROPHYLAXIS
     Dosage: UNK
     Route: 048
     Dates: start: 20120522
  10. ALOSITOL [Suspect]
     Indication: PRODUCT USED FOR UNKNOWN INDICATION
     Dosage: UNK
     Route: 048
  11. ALOSITOL [Suspect]
     Route: 048
  12. METGLUCO [Suspect]
     Indication: PRODUCT USED FOR UNKNOWN INDICATION
     Dosage: UNK
     Route: 048
  13. METGLUCO [Suspect]
     Route: 048
  14. ADCIRCA [Concomitant]
     Indication: PULMONARY ARTERIAL HYPERTENSION
     Dosage: UNK
     Route: 048
  15. CARELOAD LA [Concomitant]
     Indication: PULMONARY ARTERIAL HYPERTENSION
     Route: 048
     Dates: end: 20120419
  16. FLUITRAN [Concomitant]
     Route: 048
  17. FLUITRAN [Concomitant]
     Route: 048
  18. ALDACTONE A [Concomitant]
     Route: 048
  19. ALDACTONE A [Concomitant]
     Dosage: UNK
     Route: 048
  20. ALDACTONE A [Concomitant]
     Route: 048
  21. FUROSEMIDE [Concomitant]
     Route: 048
  22. FUROSEMIDE [Concomitant]
     Route: 048
  23. ASPARA POTASSIUM [Concomitant]
     Indication: PROPHYLAXIS
     Route: 048
     Dates: start: 20120325
  24. FERROMIA [Concomitant]
     Route: 048
     Dates: start: 20120324, end: 20120419
  25. WARFARIN [Concomitant]
     Indication: THROMBOSIS PROPHYLAXIS
     Route: 048
  26. WARFARIN [Concomitant]
     Route: 048
  27. HALFDIGOXIN [Concomitant]
     Indication: PROPHYLAXIS
     Route: 048
     Dates: start: 20120922
  28. MUCOSOLVAN [Concomitant]
     Indication: INFECTION PROPHYLAXIS
     Route: 048
     Dates: start: 20120922

REACTIONS (11)
  - Pulmonary veno-occlusive disease [Recovering/Resolving]
  - Pulmonary oedema [Recovering/Resolving]
  - Pulmonary alveolar haemorrhage [Recovering/Resolving]
  - Gastrointestinal haemorrhage [Not Recovered/Not Resolved]
  - Right ventricular failure [Recovering/Resolving]
  - Right ventricular failure [Recovering/Resolving]
  - Right ventricular failure [Recovering/Resolving]
  - Pneumonia [Recovering/Resolving]
  - Hepatic function abnormal [Recovering/Resolving]
  - Platelet count decreased [Not Recovered/Not Resolved]
  - Anaemia [Not Recovered/Not Resolved]
